FAERS Safety Report 10157783 (Version 2)
Quarter: 2014Q2

REPORT INFORMATION
  Report Type: Spontaneous
  Country: US (occurrence: US)
  Receive Date: 20140507
  Receipt Date: 20140515
  Transmission Date: 20141212
  Serious: Yes (Other)
  Sender: FDA-Public Use
  Company Number: US-SA-2014SA056725

PATIENT
  Age: 62 Year
  Sex: Female

DRUGS (4)
  1. LANTUS [Suspect]
     Indication: TYPE 2 DIABETES MELLITUS
     Dosage: DOSE: 40 (UNITS UNSPECIFIED)?DAILY DOSE: 80 (UNITS UNSPECIFIED)?VIAL
     Route: 065
  2. LANTUS SOLOSTAR [Suspect]
     Indication: TYPE 2 DIABETES MELLITUS
     Dosage: DOSE:40 (UNITS UNSPECIFIED)?DAILY DOSE: 80 (UNITS UNSPECIFIED)
     Route: 065
     Dates: start: 2014
  3. SOLOSTAR [Concomitant]
  4. ALL OTHER THERAPEUTIC PRODUCTS [Concomitant]

REACTIONS (2)
  - Brain injury [Unknown]
  - Blood glucose fluctuation [Unknown]
